FAERS Safety Report 6839497-6 (Version None)
Quarter: 2010Q3

REPORT INFORMATION
  Report Type: 
  Country: None (occurrence: None)
  Receive Date: 20100714
  Receipt Date: 20090930
  Transmission Date: 20110219
  Serious: No
  Sender: FDA-Public Use
  Company Number: A0809747A

PATIENT
  Age: 76 Year
  Sex: Female

DRUGS (5)
  1. FLOVENT [Suspect]
     Indication: ASTHMA
     Dosage: 220MCG TWICE PER DAY
     Route: 055
     Dates: start: 20081006
  2. LOVAZA [Concomitant]
  3. VITAMIN D [Concomitant]
  4. GLUCOSAMINE [Concomitant]
  5. ZYRTEC [Concomitant]

REACTIONS (1)
  - SINUS CONGESTION [None]
